FAERS Safety Report 24869886 (Version 1)
Quarter: 2025Q1

REPORT INFORMATION
  Report Type: Spontaneous
  Country: US (occurrence: None)
  Receive Date: 20250120
  Receipt Date: 20250120
  Transmission Date: 20250408
  Serious: Yes (Hospitalization)
  Sender: FDA-CTU
  Company Number: None

PATIENT
  Age: 73 Year
  Sex: Female
  Weight: 102.2 kg

DRUGS (4)
  1. LISINOPRIL AND HYDROCHLOROTHIAZIDE [Suspect]
     Active Substance: HYDROCHLOROTHIAZIDE\LISINOPRIL
     Dosage: FREQUENCY : DAILY;?
     Route: 048
  2. ATORVASTATIN [Suspect]
     Active Substance: ATORVASTATIN
  3. SEMAGLUTIDE [Suspect]
     Active Substance: SEMAGLUTIDE
  4. FOOD - PLANT SOURCE, ALMOND PRUNUS AMYGDALUS [Suspect]
     Active Substance: ALMOND

REACTIONS (10)
  - Anaphylactic shock [None]
  - Angioedema [None]
  - Urticaria [None]
  - Mouth swelling [None]
  - Lip swelling [None]
  - Hypotension [None]
  - Abdominal discomfort [None]
  - Tachycardia [None]
  - Swollen tongue [None]
  - Wheezing [None]

NARRATIVE: CASE EVENT DATE: 20250107
